FAERS Safety Report 5243117-4 (Version None)
Quarter: 2007Q1

REPORT INFORMATION
  Report Type: 
  Country: None (occurrence: None)
  Receive Date: 20070221
  Receipt Date: 20070212
  Transmission Date: 20070707
  Serious: Yes (Hospitalization)
  Sender: FDA-Public Use
  Company Number: GR-ABBOTT-05P-066-0304678-00

PATIENT
  Sex: Female
  Weight: 69 kg

DRUGS (9)
  1. HUMIRA [Suspect]
     Indication: RHEUMATOID ARTHRITIS
     Route: 058
     Dates: start: 20041220, end: 20050602
  2. HUMIRA [Suspect]
     Route: 058
     Dates: start: 20050710
  3. METHOTREXATE SODIUM [Concomitant]
     Indication: RHEUMATOID ARTHRITIS
     Dates: start: 20040601
  4. METHYLPREDNISOLONE 16MG TAB [Concomitant]
     Indication: RHEUMATOID ARTHRITIS
     Dates: start: 20040901
  5. MEGA CALCIUM [Concomitant]
     Indication: OSTEOPOROSIS PROPHYLAXIS
     Dates: start: 20021001
  6. ONE ALPHA [Concomitant]
     Indication: OSTEOPOROSIS PROPHYLAXIS
     Dates: start: 20021001
  7. NIMESULIDE [Concomitant]
     Indication: RHEUMATOID ARTHRITIS
     Dates: start: 20030408
  8. RANITIDINE HYDROCHLORIDE [Concomitant]
     Indication: PROPHYLAXIS AGAINST GASTROINTESTINAL ULCER
     Dates: start: 20040901
  9. FOLICIN [Concomitant]
     Indication: VITAMIN SUPPLEMENTATION
     Dates: start: 20040601

REACTIONS (1)
  - CERVICAL MYELOPATHY [None]
